FAERS Safety Report 13830823 (Version 3)
Quarter: 2018Q2

REPORT INFORMATION
  Report Type: Report from Study
  Country: BR (occurrence: BR)
  Receive Date: 20170803
  Receipt Date: 20180423
  Transmission Date: 20180711
  Serious: Yes (Hospitalization)
  Sender: FDA-Public Use
  Company Number: BR-JNJFOC-20170724382

PATIENT
  Sex: Female
  Weight: 78 kg

DRUGS (3)
  1. SIMPONI [Suspect]
     Active Substance: GOLIMUMAB
     Indication: RHEUMATOID ARTHRITIS
     Route: 058
     Dates: start: 20140219, end: 20180217
  2. LEFLUNOMIDE. [Concomitant]
     Active Substance: LEFLUNOMIDE
     Route: 065
  3. PREGABALINE [Concomitant]
     Active Substance: PREGABALIN
     Route: 065

REACTIONS (4)
  - Intervertebral disc protrusion [Not Recovered/Not Resolved]
  - Scoliosis [Not Recovered/Not Resolved]
  - Exostosis [Not Recovered/Not Resolved]
  - Back injury [Not Recovered/Not Resolved]
